FAERS Safety Report 15183357 (Version 3)
Quarter: 2019Q4

REPORT INFORMATION
  Report Type: Spontaneous
  Country: US (occurrence: US)
  Receive Date: 20180723
  Receipt Date: 20191216
  Transmission Date: 20200122
  Serious: Yes (Hospitalization)
  Sender: FDA-Public Use
  Company Number: US-SA-2018SA194820

PATIENT
  Age: 50 Year
  Sex: Male
  Weight: 78 kg

DRUGS (1)
  1. FABRAZYME [Suspect]
     Active Substance: AGALSIDASE BETA
     Dosage: 80 MG, QOW
     Route: 041
     Dates: start: 20170428

REACTIONS (5)
  - Malaise [Not Recovered/Not Resolved]
  - Sciatica [Unknown]
  - Paraesthesia [Unknown]
  - Headache [Unknown]
  - Dysstasia [Unknown]

NARRATIVE: CASE EVENT DATE: 201807
